FAERS Safety Report 13203008 (Version 5)
Quarter: 2018Q1

REPORT INFORMATION
  Report Type: Spontaneous
  Country: US (occurrence: US)
  Receive Date: 20170209
  Receipt Date: 20180110
  Transmission Date: 20180508
  Serious: No
  Sender: FDA-Public Use
  Company Number: US-PFIZER INC-2017054855

PATIENT
  Age: 69 Year
  Sex: Female

DRUGS (3)
  1. MEDROXYPROGESTERONE [Concomitant]
     Active Substance: MEDROXYPROGESTERONE
     Dosage: 5 MG, UNK (DAY1-14/MONTH)
  2. PREMARIN [Suspect]
     Active Substance: ESTROGENS, CONJUGATED
     Dosage: 1/2-1GM  DAILY
     Route: 067
  3. AMANTADINE. [Concomitant]
     Active Substance: AMANTADINE HYDROCHLORIDE
     Indication: GASTROOESOPHAGEAL REFLUX DISEASE
     Dosage: 150 MG, 2X/DAY

REACTIONS (4)
  - Eye disorder [Unknown]
  - Abdominal pain lower [Unknown]
  - Vulvovaginal candidiasis [Recovering/Resolving]
  - Vulvovaginal burning sensation [Unknown]
